FAERS Safety Report 5792072-7 (Version None)
Quarter: 2008Q2

REPORT INFORMATION
  Report Type: 
  Country: None (occurrence: None)
  Receive Date: 20080626
  Receipt Date: 20080320
  Transmission Date: 20081010
  Serious: No
  Sender: FDA-Public Use
  Company Number: US-ASTRAZENECA-2008UW05691

PATIENT
  Age: 58 Year
  Sex: Female

DRUGS (5)
  1. PULMICORT FLEXHALER [Suspect]
     Indication: ASTHMA
     Route: 055
  2. PULMICORT [Suspect]
     Indication: SEASONAL ALLERGY
     Route: 055
     Dates: start: 19980101
  3. LEVOTHYROXINE SODIUM [Concomitant]
  4. DIOVAN [Concomitant]
  5. PRILOSEC OTC [Concomitant]

REACTIONS (3)
  - DYSPHONIA [None]
  - LUNG INFECTION [None]
  - SINUSITIS [None]
